FAERS Safety Report 6003920-X (Version None)
Quarter: 2008Q4

REPORT INFORMATION
  Report Type: 
  Country: None (occurrence: None)
  Receive Date: 20081216
  Receipt Date: 20081208
  Transmission Date: 20090506
  Serious: Yes (Hospitalization)
  Sender: FDA-Public Use
  Company Number: US-PURDUE-USA_2008_0036180

PATIENT
  Age: 72 Year
  Sex: Female

DRUGS (2)
  1. OXYCONTIN [Suspect]
     Indication: CANCER PAIN
     Dosage: 60 MG, TID
     Route: 048
     Dates: start: 20081119
  2. DILAUDID [Suspect]
     Indication: BREAKTHROUGH PAIN
     Dosage: UNK, SEE TEXT
     Dates: start: 20081119

REACTIONS (6)
  - CYSTITIS [None]
  - DEHYDRATION [None]
  - DIARRHOEA [None]
  - NAUSEA [None]
  - URINARY TRACT INFECTION [None]
  - VOMITING [None]
